FAERS Safety Report 4871950-7 (Version None)
Quarter: 2006Q1

REPORT INFORMATION
  Report Type: 
  Country: None (occurrence: None)
  Receive Date: 20060104
  Receipt Date: 20051026
  Transmission Date: 20060701
  Serious: Yes (Hospitalization)
  Sender: FDA-Public Use
  Company Number: DE-ROCHE-422462

PATIENT
  Age: 22 Year
  Sex: Female

DRUGS (2)
  1. PEGASYS [Suspect]
     Indication: DRUG USE FOR UNKNOWN INDICATION
     Route: 065
     Dates: start: 20050115, end: 20051026
  2. RIBAVIRIN [Suspect]
     Indication: DRUG USE FOR UNKNOWN INDICATION
     Route: 065
     Dates: start: 20050115, end: 20051026

REACTIONS (3)
  - ANTINUCLEAR ANTIBODY POSITIVE [None]
  - PERICARDIAL EFFUSION [None]
  - PLEURAL EFFUSION [None]
